FAERS Safety Report 7606527-3 (Version None)
Quarter: 2011Q3

REPORT INFORMATION
  Report Type: 
  Country: None (occurrence: None)
  Receive Date: 20110713
  Receipt Date: 20110711
  Transmission Date: 20111222
  Serious: Yes (Death)
  Sender: FDA-Public Use
  Company Number: EG-PFIZER INC-2011151203

PATIENT
  Age: 64 Year
  Sex: Female

DRUGS (1)
  1. ZYVOX [Suspect]
     Indication: BACTERIAL DISEASE CARRIER
     Dosage: 600 MG, 2X/DAY
     Route: 042
     Dates: start: 20110630

REACTIONS (1)
  - DEATH [None]
